FAERS Safety Report 8942381 (Version 3)
Quarter: 2012Q4

REPORT INFORMATION
  Report Type: 
  Country: US (occurrence: US)
  Receive Date: 20121204
  Receipt Date: 20121219
  Transmission Date: 20130627
  Serious: Yes (Hospitalization)
  Sender: FDA-Public Use
  Company Number: US-PFIZER INC-2012302472

PATIENT
  Age: 49 Year
  Sex: Male

DRUGS (2)
  1. ALDACTONE [Suspect]
     Dosage: 25 mg, 1x/day (1, Once a day)
  2. PROTONIX [Suspect]
     Dosage: 40 mg, 2x/day (1, Twice Daily)

REACTIONS (1)
  - Diabetic coma [Unknown]
